FAERS Safety Report 19676012 (Version 4)
Quarter: 2022Q3

REPORT INFORMATION
  Report Type: Spontaneous
  Country: BR (occurrence: BR)
  Receive Date: 20210809
  Receipt Date: 20220722
  Transmission Date: 20221027
  Serious: Yes (Other)
  Sender: FDA-Public Use
  Company Number: BR-BIOGEN-2021BI01037956

PATIENT
  Sex: Male
  Weight: 75 kg

DRUGS (8)
  1. AVONEX PEN [Suspect]
     Active Substance: INTERFERON BETA-1A
     Indication: Tropical spastic paresis
     Route: 050
     Dates: start: 201709
  2. AVONEX PEN [Suspect]
     Active Substance: INTERFERON BETA-1A
     Route: 050
     Dates: start: 2017, end: 2020
  3. AVONEX PEN [Suspect]
     Active Substance: INTERFERON BETA-1A
     Route: 050
     Dates: start: 2020
  4. AVONEX PEN [Suspect]
     Active Substance: INTERFERON BETA-1A
  5. lorax [Concomitant]
     Indication: Anxiety
     Route: 050
  6. lorax [Concomitant]
     Dosage: AT NIGHT
     Route: 050
     Dates: start: 2004
  7. lorax [Concomitant]
     Route: 050
  8. ALPRAZOLAM [Concomitant]
     Active Substance: ALPRAZOLAM
     Indication: Product used for unknown indication
     Route: 050

REACTIONS (25)
  - Myasthenia gravis [Not Recovered/Not Resolved]
  - Faecaloma [Unknown]
  - Ankle fracture [Not Recovered/Not Resolved]
  - Micturition urgency [Not Recovered/Not Resolved]
  - Sleep deficit [Not Recovered/Not Resolved]
  - Memory impairment [Not Recovered/Not Resolved]
  - Tooth disorder [Not Recovered/Not Resolved]
  - Crepitations [Not Recovered/Not Resolved]
  - Musculoskeletal disorder [Not Recovered/Not Resolved]
  - Bone lesion [Unknown]
  - Central nervous system lesion [Unknown]
  - Dysphagia [Not Recovered/Not Resolved]
  - Oedema peripheral [Unknown]
  - Arthropod bite [Unknown]
  - Cellulitis [Unknown]
  - Muscular weakness [Not Recovered/Not Resolved]
  - Depression [Not Recovered/Not Resolved]
  - Pruritus [Unknown]
  - Inappropriate schedule of product administration [Not Recovered/Not Resolved]
  - Pain of skin [Not Recovered/Not Resolved]
  - Malaise [Recovered/Resolved]
  - Hair texture abnormal [Unknown]
  - Injection site discolouration [Unknown]
  - Hyperaesthesia [Unknown]
  - Electric shock sensation [Unknown]

NARRATIVE: CASE EVENT DATE: 20200101
